FAERS Safety Report 8516597-6 (Version None)
Quarter: 2012Q3

REPORT INFORMATION
  Report Type: 
  Country: None (occurrence: None)
  Receive Date: 20120712
  Receipt Date: 20120712
  Transmission Date: 20120928
  Serious: No
  Sender: FDA-Public Use
  Company Number: None

PATIENT
  Age: 73 Year
  Sex: Female
  Weight: 60.3 kg

DRUGS (2)
  1. ONDANSETRON [Suspect]
     Dosage: 16 MG X1 IV
     Route: 042
  2. RANITIDINE [Suspect]
     Dosage: 50 MG X1 IV
     Route: 042

REACTIONS (4)
  - NAUSEA [None]
  - GAZE PALSY [None]
  - ABDOMINAL PAIN [None]
  - UNRESPONSIVE TO STIMULI [None]
